FAERS Safety Report 18489956 (Version 2)
Quarter: 2020Q4

REPORT INFORMATION
  Report Type: Spontaneous
  Country: US (occurrence: US)
  Receive Date: 20201111
  Receipt Date: 20201231
  Transmission Date: 20210114
  Serious: No
  Sender: FDA-Public Use
  Company Number: US-IPSEN BIOPHARMACEUTICALS, INC.-2020-21416

PATIENT
  Age: 76 Year
  Sex: Male
  Weight: 88.45 kg

DRUGS (8)
  1. CLOPIDOGREL [Concomitant]
     Active Substance: CLOPIDOGREL BISULFATE
  2. ASA [Concomitant]
     Active Substance: ASPIRIN
  3. AMLODIPINE/BENAZEPRIL [Concomitant]
     Active Substance: AMLODIPINE BESYLATE\BENAZEPRIL HYDROCHLORIDE
     Indication: BLOOD PRESSURE MEASUREMENT
     Dosage: 5/20 MG
  4. SOMATULINE DEPOT [Suspect]
     Active Substance: LANREOTIDE ACETATE
     Indication: METASTATIC CARCINOID TUMOUR
     Dosage: 120 MG IN BUTTOCKS, ROTATE SIDES, NOV/DEC-2018 (MONTHLY)
     Route: 065
     Dates: start: 2018
  5. TRULICITY [Concomitant]
     Active Substance: DULAGLUTIDE
     Indication: DIABETES MELLITUS
     Dosage: 1.5/.05
  6. ATORVASTATIN [Concomitant]
     Active Substance: ATORVASTATIN
  7. OTEZLA [Concomitant]
     Active Substance: APREMILAST
     Indication: PSORIASIS
  8. JARDIANCE [Concomitant]
     Active Substance: EMPAGLIFLOZIN
     Indication: DIABETES MELLITUS

REACTIONS (4)
  - Nodule [Recovered/Resolved]
  - Weight decreased [Unknown]
  - Injection site nodule [Not Recovered/Not Resolved]
  - Constipation [Not Recovered/Not Resolved]

NARRATIVE: CASE EVENT DATE: 2018
